FAERS Safety Report 18202584 (Version 1)
Quarter: 2020Q3

REPORT INFORMATION
  Report Type: Report from Study
  Country: US (occurrence: US)
  Receive Date: 20200827
  Receipt Date: 20200827
  Transmission Date: 20201103
  Serious: Yes (Other)
  Sender: FDA-Public Use
  Company Number: US-BRISTOL-MYERS SQUIBB COMPANY-BMS-2020-067892

PATIENT
  Age: 65 Year
  Sex: Female
  Weight: 117.91 kg

DRUGS (2)
  1. APIXABAN [Suspect]
     Active Substance: APIXABAN
     Indication: CEREBROVASCULAR ACCIDENT PROPHYLAXIS
     Dosage: 5 MILLIGRAM, BID
     Route: 048
  2. CLOPIDOGREL [Concomitant]
     Active Substance: CLOPIDOGREL BISULFATE
     Indication: PRODUCT USED FOR UNKNOWN INDICATION
     Dosage: UNK
     Route: 065

REACTIONS (6)
  - Arterial occlusive disease [Unknown]
  - Oral discomfort [Unknown]
  - Dizziness [Unknown]
  - Product compounding quality issue [Unknown]
  - Diabetes mellitus [Unknown]
  - Throat irritation [Unknown]

NARRATIVE: CASE EVENT DATE: 20200819
